FAERS Safety Report 4396740-3 (Version None)
Quarter: 2004Q3

REPORT INFORMATION
  Report Type: 
  Country: None (occurrence: None)
  Receive Date: 20040708
  Receipt Date: 20040630
  Transmission Date: 20050211
  Serious: Yes (Other)
  Sender: FDA-Public Use
  Company Number: 2002099728JP

PATIENT
  Age: 69 Year
  Sex: Female
  Weight: 37 kg

DRUGS (13)
  1. CABERGOLINE [Suspect]
     Indication: PARKINSON'S DISEASE
     Dosage: SEE IMAGE
     Route: 048
     Dates: start: 20020112, end: 20020119
  2. CABERGOLINE [Suspect]
     Indication: PARKINSON'S DISEASE
     Dosage: SEE IMAGE
     Route: 048
     Dates: start: 20020120, end: 20020126
  3. CABERGOLINE [Suspect]
     Indication: PARKINSON'S DISEASE
     Dosage: SEE IMAGE
     Route: 048
     Dates: start: 20020127, end: 20020202
  4. CABERGOLINE [Suspect]
     Indication: PARKINSON'S DISEASE
     Dosage: SEE IMAGE
     Route: 048
     Dates: start: 20020203, end: 20020210
  5. CABERGOLINE [Suspect]
     Indication: PARKINSON'S DISEASE
     Dosage: SEE IMAGE
     Route: 048
     Dates: start: 20020211, end: 20020225
  6. CARBIDOPA AND LEVODOPA [Concomitant]
  7. DROXIDOPA (DROXIDOPA) [Concomitant]
  8. AMANTADINE HCL [Concomitant]
  9. ALFACALCIDOL (ALFACALCIDOL) [Concomitant]
  10. AZULENE SULFONATE SODIUM/L-GLUTAMINE [Concomitant]
  11. MAGNESIUM OXIDE [Concomitant]
  12. VERAPAMIL HCL [Concomitant]
  13. PILSICAINIDE HYDROCHLORIDE (PILSICAINIDE HYDROCHLORIDE) [Concomitant]

REACTIONS (8)
  - ALANINE AMINOTRANSFERASE INCREASED [None]
  - ASPARTATE AMINOTRANSFERASE INCREASED [None]
  - BLOOD LACTATE DEHYDROGENASE INCREASED [None]
  - HALLUCINATION [None]
  - LOGORRHOEA [None]
  - NEUROLEPTIC MALIGNANT SYNDROME [None]
  - PAIN IN EXTREMITY [None]
  - PSYCHIATRIC SYMPTOM [None]
